FAERS Safety Report 8841351 (Version 2)
Quarter: 2012Q4

REPORT INFORMATION
  Report Type: 
  Country: BR (occurrence: BR)
  Receive Date: 20121015
  Receipt Date: 20121114
  Transmission Date: 20130627
  Serious: Yes (Hospitalization, Other)
  Sender: FDA-Public Use
  Company Number: BR-ASTRAZENECA-2012SE76882

PATIENT
  Age: 68 Year
  Sex: Male

DRUGS (7)
  1. ATACAND [Suspect]
     Indication: HYPERTENSION
     Route: 048
  2. ATACAND [Suspect]
     Indication: HYPERTENSION
     Dosage: HALF TABLET, DAILY
     Route: 048
     Dates: start: 2012
  3. ATACAND HCT [Suspect]
     Indication: HYPERTENSION
     Dosage: 16/12.5 MG, DAILY
     Route: 048
     Dates: end: 201207
  4. ATACAND HCT [Suspect]
     Indication: BLOOD PRESSURE INCREASED
     Dosage: 16/12.5 MG, DAILY
     Route: 048
     Dates: end: 201207
  5. SELOZOK [Suspect]
     Route: 048
     Dates: start: 2009, end: 201207
  6. SELOZOK [Suspect]
     Route: 048
     Dates: start: 2012
  7. SOMALIGN CARDIO [Concomitant]
     Route: 048

REACTIONS (10)
  - Colon cancer [Unknown]
  - Small intestine carcinoma [Unknown]
  - Infarction [Recovered/Resolved]
  - Intestinal obstruction [Recovered/Resolved]
  - Gastrointestinal cancer metastatic [Not Recovered/Not Resolved]
  - Renal impairment [Recovered/Resolved]
  - Weight decreased [Unknown]
  - Blood pressure increased [Not Recovered/Not Resolved]
  - Blood pressure inadequately controlled [Recovered/Resolved]
  - Drug ineffective [Unknown]
